FAERS Safety Report 6193533-1 (Version None)
Quarter: 2009Q2

REPORT INFORMATION
  Report Type: 
  Country: None (occurrence: None)
  Receive Date: 20090518
  Receipt Date: 20090508
  Transmission Date: 20091009
  Serious: Yes (Death, Other)
  Sender: FDA-Public Use
  Company Number: GB-GENENTECH-283017

PATIENT

DRUGS (2)
  1. HERCEPTIN [Suspect]
     Indication: DRUG USE FOR UNKNOWN INDICATION
     Dosage: UNK
     Route: 065
  2. TAMOXIFEN CITRATE [Concomitant]
     Indication: DISEASE PROGRESSION
     Dosage: UNK

REACTIONS (2)
  - DEATH [None]
  - DISEASE PROGRESSION [None]
